FAERS Safety Report 5237850-8 (Version None)
Quarter: 2007Q1

REPORT INFORMATION
  Report Type: 
  Country: None (occurrence: None)
  Receive Date: 20070214
  Receipt Date: 20070206
  Transmission Date: 20070707
  Serious: Yes (Hospitalization)
  Sender: FDA-Public Use
  Company Number: US-BRISTOL-MYERS SQUIBB COMPANY-13671466

PATIENT
  Age: 61 Year
  Sex: Female

DRUGS (4)
  1. CAPTOPRIL [Suspect]
  2. FUROSEMIDE [Suspect]
  3. VERAPAMIL [Concomitant]
  4. PROPRANOLOL HYDROCHLORIDE [Concomitant]
     Dosage: PROPANOLOL ADDED 8 DAYS BEFORE ADMIT

REACTIONS (12)
  - ASTHENIA [None]
  - DIARRHOEA [None]
  - DIZZINESS [None]
  - DYSPNOEA [None]
  - EXTRASYSTOLES [None]
  - FATIGUE [None]
  - HYPERHIDROSIS [None]
  - NAUSEA [None]
  - NODAL ARRHYTHMIA [None]
  - PALPITATIONS [None]
  - SINUS BRADYCARDIA [None]
  - VOMITING [None]
